FAERS Safety Report 8037948-5 (Version None)
Quarter: 2012Q1

REPORT INFORMATION
  Report Type: 
  Country: None (occurrence: None)
  Receive Date: 20120111
  Receipt Date: 20120110
  Transmission Date: 20120608
  Serious: Yes (Life-Threatening, Hospitalization)
  Sender: FDA-Public Use
  Company Number: GB-B.I. PHARMACEUTICALS,INC./RIDGEFIELD-2012-UK-00030UK

PATIENT
  Age: 74 Year
  Sex: Male
  Weight: 82.8 kg

DRUGS (8)
  1. TEMAZEPAM [Concomitant]
  2. ATORVASTATIN [Concomitant]
  3. CLOPIDOGREL [Concomitant]
  4. ACETAMINOPHEN AND CODEINE PHOSPHATE [Concomitant]
  5. RAMIPRIL [Concomitant]
  6. BISOPROLOL FUMARATE [Concomitant]
  7. PRADAXA [Suspect]
     Indication: THROMBOSIS PROPHYLAXIS
     Dosage: 220 MG
     Route: 048
     Dates: start: 20111003, end: 20111013
  8. ALBUTEROL SULFATE AUTOHALER [Concomitant]

REACTIONS (6)
  - UPPER GASTROINTESTINAL HAEMORRHAGE [None]
  - MELAENA [None]
  - DIZZINESS [None]
  - DUODENAL ULCER [None]
  - HAEMOGLOBIN DECREASED [None]
  - HEADACHE [None]
